FAERS Safety Report 13687648 (Version 1)
Quarter: 2017Q2

REPORT INFORMATION
  Report Type: Spontaneous
  Country: US (occurrence: US)
  Receive Date: 20170625
  Receipt Date: 20170625
  Transmission Date: 20170830
  Serious: No
  Sender: FDA-Public Use
  Company Number: US-009507513-1705USA013360

PATIENT
  Age: 68 Year
  Sex: Male

DRUGS (5)
  1. THYROID [Concomitant]
     Active Substance: LEVOTHYROXINE\LIOTHYRONINE
     Indication: THYROID DISORDER
     Dosage: UNK, ONCE DAILY IN THE MORNING
  2. ASPIRIN. [Concomitant]
     Active Substance: ASPIRIN
     Dosage: AN ASPIRIN ONCE DAILY IN THE MORNING
     Route: 048
  3. ZEPATIER [Suspect]
     Active Substance: ELBASVIR\GRAZOPREVIR
     Indication: HEPATITIS C
     Dosage: ONE TABLET ONCE DAILY IN THE MORNING
     Route: 048
     Dates: start: 2017
  4. OXYCODONE [Concomitant]
     Active Substance: OXYCODONE
     Indication: PAIN
     Dosage: UNK, ONCE DAILY IN THE MORNING
  5. GABAPENTIN. [Concomitant]
     Active Substance: GABAPENTIN
     Dosage: ONCE DAILY IN THE MORNING AS NEEDED

REACTIONS (2)
  - Paranoia [Unknown]
  - Accidental overdose [Unknown]

NARRATIVE: CASE EVENT DATE: 20170524
